FAERS Safety Report 20548352 (Version 1)
Quarter: 2022Q1

REPORT INFORMATION
  Report Type: Report from Study
  Country: CA (occurrence: CA)
  Receive Date: 20220303
  Receipt Date: 20220303
  Transmission Date: 20220423
  Serious: Yes (Other)
  Sender: FDA-Public Use
  Company Number: CA-GILEAD-2022-0570606

PATIENT
  Age: 59 Year
  Sex: Male
  Weight: 96.1 kg

DRUGS (47)
  1. SOFOSBUVIR\VELPATASVIR [Suspect]
     Active Substance: SOFOSBUVIR\VELPATASVIR
     Indication: Chronic hepatitis C
     Dosage: 1 DOSAGE FORM, QD
     Route: 065
     Dates: start: 20181026, end: 20190118
  2. ALENDRONATE [Concomitant]
     Active Substance: ALENDRONATE SODIUM
  3. AMITRIPTYLINE [Concomitant]
     Active Substance: AMITRIPTYLINE
  4. AMLODIPINE [Concomitant]
     Active Substance: AMLODIPINE BESYLATE
  5. ATORVASTATIN [Concomitant]
     Active Substance: ATORVASTATIN
  6. BISOPROLOL [Concomitant]
     Active Substance: BISOPROLOL
  7. CALCIUM [Concomitant]
     Active Substance: CALCIUM
  8. CALCIUM CARBONATE [Concomitant]
     Active Substance: CALCIUM CARBONATE
  9. CIPROFLOXACIN [Concomitant]
     Active Substance: CIPROFLOXACIN
  10. CYCLOSPORINE [Concomitant]
     Active Substance: CYCLOSPORINE
  11. DOCUSATE SODIUM [Concomitant]
     Active Substance: DOCUSATE SODIUM
  12. FERROUS FUMARATE [Concomitant]
     Active Substance: FERROUS FUMARATE
  13. FUROSEMIDE [Concomitant]
     Active Substance: FUROSEMIDE
  14. GABAPENTIN [Concomitant]
     Active Substance: GABAPENTIN
  15. GLYCERIN [Concomitant]
     Active Substance: GLYCERIN
  16. HEPARIN [Concomitant]
     Active Substance: HEPARIN SODIUM
  17. HYDROMORPHONE [Concomitant]
     Active Substance: HYDROMORPHONE
  18. INSULIN GLARGINE [Concomitant]
     Active Substance: INSULIN GLARGINE
  19. INSULIN LISPRO [Concomitant]
     Active Substance: INSULIN LISPRO
  20. IPRATROPIUM [Concomitant]
     Active Substance: IPRATROPIUM
  21. MAGNESIUM [Concomitant]
     Active Substance: MAGNESIUM
  22. MAGNESIUM OXIDE [Concomitant]
     Active Substance: MAGNESIUM OXIDE
  23. METOLAZONE [Concomitant]
     Active Substance: METOLAZONE
  24. MYCOPHENOLIC ACID [Concomitant]
     Active Substance: MYCOPHENOLIC ACID
  25. NABILONE [Concomitant]
     Active Substance: NABILONE
  26. NITRO BID [Concomitant]
  27. NOVASEN [Concomitant]
  28. NYSTATIN [Concomitant]
     Active Substance: NYSTATIN
  29. ONDANSETRON [Concomitant]
     Active Substance: ONDANSETRON
  30. OXYGEN [Concomitant]
     Active Substance: OXYGEN
  31. HUMAN PLASMA [Concomitant]
     Active Substance: HUMAN PLASMA
  32. POLYETHYLENE GLYCOL 3350 [Concomitant]
     Active Substance: POLYETHYLENE GLYCOL 3350
  33. PREDNISONE [Concomitant]
     Active Substance: PREDNISONE
  34. RAMIPRIL [Concomitant]
     Active Substance: RAMIPRIL
  35. ROSUVASTATIN [Concomitant]
     Active Substance: ROSUVASTATIN
  36. ALBUTEROL [Concomitant]
     Active Substance: ALBUTEROL
  37. SENNA [Concomitant]
     Active Substance: SENNA LEAF\SENNOSIDES\SENNOSIDES A AND B
  38. SIMULECT [Concomitant]
     Active Substance: BASILIXIMAB
  39. SPIRIVA [Concomitant]
     Active Substance: TIOTROPIUM BROMIDE MONOHYDRATE
  40. SULFADIAZINE\TRIMETHOPRIM [Concomitant]
     Active Substance: SULFADIAZINE\TRIMETHOPRIM
  41. SYMBICORT [Concomitant]
     Active Substance: BUDESONIDE\FORMOTEROL FUMARATE DIHYDRATE
  42. TELMISARTAN [Concomitant]
     Active Substance: TELMISARTAN
  43. TIOTROPIUM [Concomitant]
     Active Substance: TIOTROPIUM
  44. TYLENOL [Concomitant]
     Active Substance: ACETAMINOPHEN
  45. VALGANCICLOVIR [Concomitant]
     Active Substance: VALGANCICLOVIR
  46. VITAMIN D NOS [Concomitant]
     Active Substance: VITAMIN D NOS
  47. ZOPICLONE [Concomitant]
     Active Substance: ZOPICLONE

REACTIONS (7)
  - Transplant rejection [Unknown]
  - Pneumonia [Recovered/Resolved]
  - Impaired gastric emptying [Unknown]
  - Aspiration [Unknown]
  - Procedural pain [Unknown]
  - Pleural effusion [Unknown]
  - Dyspnoea [Unknown]

NARRATIVE: CASE EVENT DATE: 20181113
